FAERS Safety Report 20813898 (Version 1)
Quarter: 2022Q2

REPORT INFORMATION
  Report Type: Spontaneous
  Country: US (occurrence: None)
  Receive Date: 20220510
  Receipt Date: 20220510
  Transmission Date: 20220721
  Serious: No
  Sender: FDA-Public Use
  Company Number: None

PATIENT
  Age: 24 Year
  Sex: Female
  Weight: 78.75 kg

DRUGS (5)
  1. DEXTROAMPHET SACCHARAT, AMPHET ASPARTATE, DEXTROAMPHET SULFATE AND AMP [Suspect]
     Active Substance: AMPHETAMINE ASPARTATE\AMPHETAMINE SULFATE\DEXTROAMPHETAMINE SACCHARATE\DEXTROAMPHETAMINE SULFATE
     Indication: Attention deficit hyperactivity disorder
     Dosage: OTHER QUANTITY : 1 TABLET(S);?FREQUENCY : TWICE A DAY;?
     Route: 048
     Dates: start: 20220411, end: 20220415
  2. PHENTERMINE [Concomitant]
     Active Substance: PHENTERMINE
  3. TOPIRAMATE [Concomitant]
     Active Substance: TOPIRAMATE
  4. ARMOUR THYROID [Concomitant]
     Active Substance: THYROID, PORCINE
  5. PRISTIQ EXTENDED-RELEASE [Concomitant]
     Active Substance: DESVENLAFAXINE SUCCINATE

REACTIONS (7)
  - Product substitution issue [None]
  - Drug ineffective [None]
  - Headache [None]
  - Abdominal pain [None]
  - Vomiting [None]
  - Fatigue [None]
  - Confusional state [None]

NARRATIVE: CASE EVENT DATE: 20220411
